FAERS Safety Report 25954897 (Version 1)
Quarter: 2025Q4

REPORT INFORMATION
  Report Type: Report from Study
  Country: US (occurrence: US)
  Receive Date: 20251024
  Receipt Date: 20251024
  Transmission Date: 20260118
  Serious: Yes (Other)
  Sender: EMD SERONO INC
  Company Number: US-Merck Healthcare KGaA-2025052739

PATIENT
  Age: 42 Year
  Sex: Female

DRUGS (3)
  1. REBIF [Suspect]
     Active Substance: INTERFERON BETA-1A
     Indication: Multiple sclerosis
     Dosage: WEEKS 1 AND 2
     Dates: start: 20250307
  2. REBIF [Suspect]
     Active Substance: INTERFERON BETA-1A
     Dosage: WEEKS THREE AND FOUR
  3. REBIF [Suspect]
     Active Substance: INTERFERON BETA-1A
     Dosage: WEEK 5 AND THEREAFTER
     Dates: end: 20250519

REACTIONS (3)
  - Hepatic fibrosis [Unknown]
  - Hepatic steatosis [Recovering/Resolving]
  - Liver injury [Unknown]
